FAERS Safety Report 10128386 (Version 1)
Quarter: 2014Q2

REPORT INFORMATION
  Report Type: Spontaneous
  Country: US (occurrence: US)
  Receive Date: 20140428
  Receipt Date: 20140428
  Transmission Date: 20141212
  Serious: No
  Sender: FDA-Public Use
  Company Number: US-BIOGENIDEC-2014BI037066

PATIENT
  Age: 53 Year
  Sex: Female

DRUGS (30)
  1. TECFIDERA [Suspect]
     Indication: MULTIPLE SCLEROSIS
     Route: 048
     Dates: start: 201401
  2. AMPYRA ER [Concomitant]
  3. CYMBALTA [Concomitant]
  4. CAL TRATE-600 WITH VIT D [Concomitant]
  5. HYDROMORPHONE [Concomitant]
  6. LIPITOR [Concomitant]
  7. DONEPEZIL [Concomitant]
  8. METFORMIN HCL [Concomitant]
  9. GABAPENTIN [Concomitant]
  10. HYDROCHLOROTHIAZIDE [Concomitant]
  11. DIAZEPAM [Concomitant]
  12. BACLOFEN [Concomitant]
  13. HYDRALAZINE [Concomitant]
  14. TIZANIDINE HCL [Concomitant]
  15. NEXIUM DR [Concomitant]
  16. LOW DOSE ASPIRIN EC [Concomitant]
  17. PROTOPIC OINTMENT [Concomitant]
  18. DULCOLAX EC [Concomitant]
  19. METOPROLOL SUCC ER [Concomitant]
  20. MAGNESIUM GLUC [Concomitant]
  21. NIACIN [Concomitant]
  22. TOPAMAX [Concomitant]
  23. ZETIA [Concomitant]
  24. WELCHOL [Concomitant]
  25. MS CONTIN [Concomitant]
  26. PV VITAMIN D [Concomitant]
  27. CARISOPRODOL [Concomitant]
  28. TRIAMCINOLONE [Concomitant]
  29. CETAPHIL [Concomitant]
  30. FLAXSEED OIL [Concomitant]

REACTIONS (2)
  - Insomnia [Unknown]
  - Nausea [Unknown]
